FAERS Safety Report 10306553 (Version 2)
Quarter: 2014Q1

REPORT INFORMATION
  Report Type: Spontaneous
  Country: US (occurrence: None)
  Receive Date: 20120817
  Receipt Date: 20130815
  Transmission Date: 20141002
  Serious: Yes (Other)
  Sender: FDA-Public Use
  Company Number: ADR-2011-11078

PATIENT
  Age: 13 Year
  Sex: Male

DRUGS (1)
  1. LIORESAL [Suspect]
     Indication: MUSCLE SPASTICITY
     Dosage: 727.1 MCG/ML/DAY
     Route: 037

REACTIONS (4)
  - Muscle tightness [None]
  - Muscle spasticity [None]
  - Musculoskeletal stiffness [None]
  - Abnormal behaviour [None]
